FAERS Safety Report 4402000-4 (Version None)
Quarter: 2004Q3

REPORT INFORMATION
  Report Type: 
  Country: None (occurrence: None)
  Receive Date: 20040714
  Receipt Date: 20040702
  Transmission Date: 20050211
  Serious: Yes (Hospitalization)
  Sender: FDA-Public Use
  Company Number: 04P-163-0266511-00

PATIENT
  Age: 51 Year
  Sex: Female
  Weight: 90.7194 kg

DRUGS (4)
  1. SYNTHROID [Suspect]
     Indication: THYROID NEOPLASM
     Dosage: 50 MCG, 1 IN 1 D, PER ORAL
     Route: 048
     Dates: start: 20030701, end: 20040606
  2. CELECOXIB [Concomitant]
  3. ROFECOXIB [Concomitant]
  4. ASPIRIN [Concomitant]

REACTIONS (4)
  - ARTHRALGIA [None]
  - BLOOD PRESSURE INCREASED [None]
  - HEADACHE [None]
  - PAIN IN EXTREMITY [None]
